FAERS Safety Report 15842699 (Version 1)
Quarter: 2019Q1

REPORT INFORMATION
  Report Type: Report from Study
  Country: US (occurrence: US)
  Receive Date: 20190118
  Receipt Date: 20190118
  Transmission Date: 20190417
  Serious: Yes (Hospitalization)
  Sender: FDA-Public Use
  Company Number: PHEH2019US001869

PATIENT
  Sex: Male

DRUGS (1)
  1. ENTRESTO [Suspect]
     Active Substance: SACUBITRIL\VALSARTAN
     Indication: CARDIAC FAILURE CONGESTIVE
     Dosage: UNK UNK, BID
     Route: 048

REACTIONS (10)
  - Depression [Unknown]
  - Weight increased [Unknown]
  - Joint swelling [Unknown]
  - Sensory loss [Unknown]
  - Chest discomfort [Unknown]
  - Dyspnoea [Unknown]
  - Peripheral swelling [Unknown]
  - Oedema [Unknown]
  - Nasopharyngitis [Unknown]
  - Fluid retention [Unknown]
